FAERS Safety Report 13997017 (Version 3)
Quarter: 2017Q4

REPORT INFORMATION
  Report Type: Other
  Country: IT (occurrence: IT)
  Receive Date: 20170921
  Receipt Date: 20171201
  Transmission Date: 20180321
  Serious: Yes (Hospitalization)
  Sender: FDA-Public Use
  Company Number: IT-CELLTRION INC.-2017IT012365

PATIENT

DRUGS (6)
  1. PANTOPRAZOLE [Concomitant]
     Active Substance: PANTOPRAZOLE
     Dosage: 40MG
     Route: 048
  2. DOBETIN                            /00056201/ [Concomitant]
     Active Substance: CYANOCOBALAMIN
     Dosage: 1 UNIT
     Route: 048
  3. PENTACOL [Concomitant]
     Active Substance: MESALAMINE
     Dosage: 2400 MG
     Route: 048
  4. REMSIMA [Suspect]
     Active Substance: INFLIXIMAB
     Indication: COLITIS ULCERATIVE
     Dosage: 295 MG TOTAL
     Route: 042
     Dates: start: 20170830, end: 20170830
  5. DELTACORTENE [Concomitant]
     Active Substance: PREDNISONE
     Dosage: 20 MG
     Route: 048
  6. IDEOS [Concomitant]
     Active Substance: CALCIUM CARBONATE\CHOLECALCIFEROL
     Dosage: 1 UNIT
     Route: 048

REACTIONS (2)
  - Leukocytosis [Recovered/Resolved]
  - Arthralgia [Recovered/Resolved]

NARRATIVE: CASE EVENT DATE: 20170908
